FAERS Safety Report 6521115-8 (Version None)
Quarter: 2009Q4

REPORT INFORMATION
  Report Type: 
  Country: None (occurrence: None)
  Receive Date: 20091229
  Receipt Date: 20091222
  Transmission Date: 20100525
  Serious: Yes (Other)
  Sender: FDA-Public Use
  Company Number: US-ELI_LILLY_AND_COMPANY-US200912005971

PATIENT
  Sex: Male

DRUGS (8)
  1. HUMALOG [Suspect]
     Indication: DIABETES MELLITUS
     Dosage: 15 U, UNK
  2. HUMALOG [Suspect]
     Dosage: 25 U, UNK
     Dates: start: 20091201
  3. HUMALOG [Suspect]
     Dosage: 30 U, UNK
     Dates: start: 20091201
  4. HUMALOG [Suspect]
     Dosage: 15 U, UNK
  5. HUMALOG [Suspect]
     Dosage: 25 U, UNK
  6. HUMALOG [Suspect]
     Dosage: 30 U, UNK
  7. HUMULIN N [Suspect]
     Indication: DIABETES MELLITUS
  8. LANTUS [Concomitant]

REACTIONS (3)
  - BLOOD GLUCOSE INCREASED [None]
  - EYE HAEMORRHAGE [None]
  - VISUAL ACUITY REDUCED [None]
